FAERS Safety Report 22606041 (Version 1)
Quarter: 2023Q2

REPORT INFORMATION
  Report Type: Spontaneous
  Country: US (occurrence: None)
  Receive Date: 20230614
  Receipt Date: 20230614
  Transmission Date: 20230722
  Serious: Yes (Hospitalization)
  Sender: FDA-Public Use
  Company Number: None

PATIENT
  Sex: Female

DRUGS (14)
  1. LENALIDOMIDE [Suspect]
     Active Substance: LENALIDOMIDE
     Indication: Plasma cell myeloma
     Dosage: FREQUENCY : DAILY;?
     Route: 048
     Dates: start: 20230322
  2. ACYCLOVIR [Concomitant]
     Active Substance: ACYCLOVIR
  3. CHLORTHALIDONE [Concomitant]
     Active Substance: CHLORTHALIDONE
  4. FOAMAX [Concomitant]
  5. LOVAZA [Concomitant]
     Active Substance: OMEGA-3-ACID ETHYL ESTERS
  6. LYRICA [Concomitant]
     Active Substance: PREGABALIN
  7. METOPROLOL TARTRATE [Concomitant]
     Active Substance: METOPROLOL TARTRATE
  8. MULTIPLE VIT [Concomitant]
  9. OMEGA-3 ACID [Concomitant]
  10. POT CL MICRO [Concomitant]
  11. PREGABALIN [Concomitant]
     Active Substance: PREGABALIN
  12. RECLAST [Concomitant]
     Active Substance: ZOLEDRONIC ACID
  13. TOPROL XL [Concomitant]
     Active Substance: METOPROLOL SUCCINATE
  14. VITAMIN D3 [Concomitant]
     Active Substance: CHOLECALCIFEROL

REACTIONS (2)
  - Surgery [None]
  - Therapy interrupted [None]
